FAERS Safety Report 8060566-X (Version None)
Quarter: 2012Q1

REPORT INFORMATION
  Report Type: 
  Country: None (occurrence: None)
  Receive Date: 20120120
  Receipt Date: 20120117
  Transmission Date: 20120608
  Serious: Yes (Death)
  Sender: FDA-Public Use
  Company Number: US-CELGENEUS-163-21880-12011776

PATIENT
  Sex: Female

DRUGS (3)
  1. POTASSIUM CHLORIDE [Concomitant]
     Route: 065
  2. REVLIMID [Suspect]
     Dosage: 5 MILLIGRAM
     Route: 048
     Dates: start: 20110726
  3. BENADRYL [Concomitant]
     Route: 065

REACTIONS (1)
  - DEATH [None]
